FAERS Safety Report 4576822-3 (Version None)
Quarter: 2005Q1

REPORT INFORMATION
  Report Type: 
  Country: None (occurrence: None)
  Receive Date: 20050207
  Receipt Date: 20050124
  Transmission Date: 20050727
  Serious: Yes (Hospitalization, Other)
  Sender: FDA-Public Use
  Company Number: 2005019342

PATIENT
  Age: 45 Year
  Sex: Male
  Weight: 120.2032 kg

DRUGS (3)
  1. CELEBREX [Suspect]
     Indication: NECK PAIN
     Dosage: 200 MG (200 MG 1 IN 1D )ORAL
     Route: 048
     Dates: start: 20040101, end: 20050113
  2. LISINOPRIL [Concomitant]
  3. CHOLESTEROL-AND TRIGLYCERIDE REDUCERS [Concomitant]

REACTIONS (10)
  - ALTERED VISUAL DEPTH PERCEPTION [None]
  - COGNITIVE DISORDER [None]
  - CONFUSIONAL STATE [None]
  - DISORIENTATION [None]
  - IMPAIRED DRIVING ABILITY [None]
  - MUSCLE SPASMS [None]
  - NERVOUS SYSTEM DISORDER [None]
  - PAIN [None]
  - PCO2 INCREASED [None]
  - SENSORY LOSS [None]
